FAERS Safety Report 16746220 (Version 1)
Quarter: 2019Q3

REPORT INFORMATION
  Report Type: Spontaneous
  Country: US (occurrence: US)
  Receive Date: 20190709
  Receipt Date: 20190709
  Transmission Date: 20191005
  Serious: Yes (Hospitalization)
  Sender: FDA-Public Use
  Company Number: None

PATIENT
  Age: 82 Year
  Sex: Female
  Weight: 47.63 kg

DRUGS (8)
  1. MULTI VITAMIN [Concomitant]
     Active Substance: VITAMINS
     Dosage: START DATE: 03-1968?STOPPED: -2019?FREQUENCY: 250 AM 250 PM- 2 PILLS
  2. LEVOTHYROXINE. [Suspect]
     Active Substance: LEVOTHYROXINE
     Indication: SEIZURE
     Route: 048
     Dates: start: 196803, end: 2019
  3. COMBIGAN [Concomitant]
     Active Substance: BRIMONIDINE TARTRATE\TIMOLOL MALEATE
  4. LEVOTHYROXINE. [Concomitant]
     Active Substance: LEVOTHYROXINE
  5. PRIMIDONE 250MG [Suspect]
     Active Substance: PRIMIDONE
  6. LAFANOPROST [Concomitant]
  7. PRIMODONE [Concomitant]
     Active Substance: PRIMIDONE
  8. LIQUID EYE DROPS [Concomitant]

REACTIONS (4)
  - Alopecia [None]
  - Dry skin [None]
  - Hypersomnia [None]
  - Tremor [None]

NARRATIVE: CASE EVENT DATE: 20190411
